FAERS Safety Report 14143834 (Version 1)
Quarter: 2017Q4

REPORT INFORMATION
  Report Type: Spontaneous
  Country: IT (occurrence: IT)
  Receive Date: 20171031
  Receipt Date: 20171031
  Transmission Date: 20180321
  Serious: Yes (Other)
  Sender: FDA-Public Use
  Company Number: IT-CIPLA LTD.-2017IT18968

PATIENT

DRUGS (3)
  1. SORAFENIB [Suspect]
     Active Substance: SORAFENIB
     Indication: THYROID CANCER
     Dosage: 200 MG, BID
     Route: 065
     Dates: start: 201103
  2. CARBOPLATIN. [Suspect]
     Active Substance: CARBOPLATIN
     Indication: THYROID CANCER
     Dosage: 40 MG/M2, UNK, 6 CYCLES
     Route: 065
     Dates: start: 200603
  3. DOXORUBICIN [Suspect]
     Active Substance: DOXORUBICIN
     Indication: THYROID CANCER
     Dosage: 60 MG/M2, UNK, 6 CYCLES
     Route: 065
     Dates: start: 200603

REACTIONS (3)
  - Atelectasis [None]
  - Metastasis [Unknown]
  - Off label use [Unknown]
